FAERS Safety Report 9995800 (Version 1)
Quarter: 2014Q1

REPORT INFORMATION
  Report Type: Spontaneous
  Country: US (occurrence: US)
  Receive Date: 20140311
  Receipt Date: 20140311
  Transmission Date: 20141002
  Serious: Yes (Hospitalization)
  Sender: FDA-Public Use
  Company Number: US-BAYER-2014-033877

PATIENT
  Age: 48 Year
  Sex: Female

DRUGS (5)
  1. YAZ [Suspect]
     Dosage: UNK
     Dates: end: 20120505
  2. GIANVI [Suspect]
     Indication: CONTRACEPTION
  3. VENLAFAXINE [Concomitant]
     Dosage: 37.5 MG, UNK
     Route: 048
  4. CLARITIN [Concomitant]
     Dosage: UNK
     Route: 048
     Dates: start: 20120503
  5. EFFEXOR [Concomitant]
     Dosage: UNK
     Route: 048
     Dates: start: 20120503

REACTIONS (1)
  - Deep vein thrombosis [None]
